FAERS Safety Report 10564112 (Version 2)
Quarter: 2014Q4

REPORT INFORMATION
  Report Type: Spontaneous
  Country: US (occurrence: US)
  Receive Date: 20141104
  Receipt Date: 20141118
  Transmission Date: 20150529
  Serious: No
  Sender: FDA-Public Use
  Company Number: US-009507513-1410USA016672

PATIENT
  Age: 91 Year
  Sex: Female

DRUGS (3)
  1. CLARITIN-D 24 HOUR [Suspect]
     Active Substance: LORATADINE\PSEUDOEPHEDRINE SULFATE
     Indication: HOUSE DUST ALLERGY
     Dosage: 10 MG, ONCE
     Route: 048
     Dates: start: 20140626
  2. CLARITIN-D 24 HOUR [Suspect]
     Active Substance: LORATADINE\PSEUDOEPHEDRINE SULFATE
     Indication: RHINORRHOEA
     Dosage: 10 MG, UNKNOWN
     Route: 048
     Dates: start: 20141003
  3. CLARITIN-D 24 HOUR [Suspect]
     Active Substance: LORATADINE\PSEUDOEPHEDRINE SULFATE
     Indication: UPPER-AIRWAY COUGH SYNDROME

REACTIONS (4)
  - Vision blurred [Unknown]
  - Drug ineffective [Unknown]
  - Insomnia [Unknown]
  - Unevaluable event [Unknown]

NARRATIVE: CASE EVENT DATE: 201410
